FAERS Safety Report 8499120-4 (Version None)
Quarter: 2012Q2

REPORT INFORMATION
  Report Type: 
  Country: None (occurrence: None)
  Receive Date: 20120405
  Receipt Date: 20100318
  Transmission Date: 20120825
  Serious: Yes (Disabling)
  Sender: FDA-Public Use
  Company Number: PHHY2010US12819

PATIENT
  Age: 64 Year
  Sex: Female
  Weight: 97.5 kg

DRUGS (4)
  1. ESTRATEST [Concomitant]
  2. CACLIUM WITH VITAMIN D (CALCIUM PHOSPHATE, CALCIUM SODIUM LACTATE, ERG [Concomitant]
  3. RECLAST [Suspect]
     Indication: OSTEOPENIA
     Dosage: 5 MG/100 ML, INTRAVENOUS
     Route: 042
     Dates: start: 20091002, end: 20091002
  4. MULTIVITAMINS (ASCORBIC ACID, ERGOCALCIFEROL, FOLIC ACID, NICOTINAMIDE [Concomitant]

REACTIONS (3)
  - OEDEMA PERIPHERAL [None]
  - JOINT SWELLING [None]
  - PAIN IN EXTREMITY [None]
